FAERS Safety Report 20926189 (Version 1)
Quarter: 2022Q2

REPORT INFORMATION
  Report Type: Spontaneous
  Country: US (occurrence: US)
  Receive Date: 20220607
  Receipt Date: 20220607
  Transmission Date: 20220721
  Serious: No
  Sender: FDA-Public Use
  Company Number: US-PERRIGO-21US009352

PATIENT
  Age: 78 Year
  Sex: Female
  Weight: 45.351 kg

DRUGS (11)
  1. MINOXIDIL [Suspect]
     Active Substance: MINOXIDIL
     Indication: Alopecia
     Dosage: UNKNOWN, ONCE
     Route: 061
     Dates: start: 20210706, end: 20210706
  2. MINOXIDIL [Suspect]
     Active Substance: MINOXIDIL
     Dosage: UNKNOWN, ONCE
     Route: 047
     Dates: start: 20210706, end: 20210706
  3. MINOXIDIL [Suspect]
     Active Substance: MINOXIDIL
     Dosage: VERY LITTLE, ONCE
     Route: 061
     Dates: start: 20210707, end: 20210707
  4. SERTRALINE HYDROCHLORIDE [Concomitant]
     Active Substance: SERTRALINE HYDROCHLORIDE
     Indication: Stress
     Dosage: 200 MG, QD
     Route: 065
  5. HYDROCHLOROTHIAZIDE [Concomitant]
     Active Substance: HYDROCHLOROTHIAZIDE
     Indication: Hypertension
     Dosage: 25 MG, UNKNOWN
     Route: 065
     Dates: start: 2018, end: 202104
  6. OLANZAPINE [Concomitant]
     Active Substance: OLANZAPINE
     Indication: Stress
     Dosage: 2.5 MG, UNKNOWN
     Route: 065
     Dates: start: 2019, end: 2021
  7. TYLENOL                            /00020001/ [Concomitant]
     Indication: Arthritis
     Dosage: 500 MG, PRN
     Route: 065
     Dates: start: 2019
  8. MELATONIN [Concomitant]
     Active Substance: MELATONIN
     Indication: Insomnia
     Dosage: 5 MG, QD
     Route: 065
     Dates: start: 2019
  9. UNSPECIFIED INGREDIENT [Concomitant]
     Active Substance: UNSPECIFIED INGREDIENT
     Indication: Gastrooesophageal reflux disease
     Dosage: UNK
     Route: 065
  10. ALENDRONATE SODIUM [Concomitant]
     Active Substance: ALENDRONATE SODIUM
     Indication: Gastrooesophageal reflux disease
     Dosage: 70 MG, WEEKLY
     Route: 065
     Dates: start: 202005
  11. ALENDRONATE SODIUM [Concomitant]
     Active Substance: ALENDRONATE SODIUM
     Indication: Osteoporosis

REACTIONS (4)
  - Eye irritation [Recovered/Resolved]
  - Accidental exposure to product [Recovered/Resolved]
  - Incorrect dose administered [Recovered/Resolved]
  - Wrong technique in product usage process [Recovered/Resolved]

NARRATIVE: CASE EVENT DATE: 20210706
